FAERS Safety Report 16058843 (Version 3)
Quarter: 2019Q2

REPORT INFORMATION
  Report Type: Spontaneous
  Country: US (occurrence: US)
  Receive Date: 20190311
  Receipt Date: 20190503
  Transmission Date: 20190711
  Serious: Yes (Other)
  Sender: FDA-Public Use
  Company Number: US-ASTRAZENECA-2018SF34019

PATIENT
  Age: 548 Month
  Sex: Female
  Weight: 72.6 kg

DRUGS (30)
  1. NEXIUM [Suspect]
     Active Substance: ESOMEPRAZOLE MAGNESIUM
     Indication: GASTROOESOPHAGEAL REFLUX DISEASE
     Route: 048
     Dates: start: 2007, end: 2013
  2. NEXIUM [Suspect]
     Active Substance: ESOMEPRAZOLE MAGNESIUM
     Indication: GASTROOESOPHAGEAL REFLUX DISEASE
     Route: 048
     Dates: start: 201412, end: 201511
  3. ATENOLOL. [Concomitant]
     Active Substance: ATENOLOL
  4. ONDANSETRON [Concomitant]
     Active Substance: ONDANSETRON
     Route: 048
  5. OXYCODONE ACETAMINOPHEN [Concomitant]
     Active Substance: ACETAMINOPHEN\OXYCODONE HYDROCHLORIDE
     Route: 048
  6. PROTONIX [Suspect]
     Active Substance: PANTOPRAZOLE SODIUM
     Indication: GASTROOESOPHAGEAL REFLUX DISEASE
     Route: 065
     Dates: start: 201412
  7. PROTONIX [Suspect]
     Active Substance: PANTOPRAZOLE SODIUM
     Indication: GASTROOESOPHAGEAL REFLUX DISEASE
     Dosage: GENERIC
     Route: 065
  8. NEXIUM [Suspect]
     Active Substance: ESOMEPRAZOLE MAGNESIUM
     Indication: GASTROOESOPHAGEAL REFLUX DISEASE
     Dosage: GENERIC
     Route: 048
  9. PROTONIX [Suspect]
     Active Substance: PANTOPRAZOLE SODIUM
     Indication: GASTROOESOPHAGEAL REFLUX DISEASE
     Route: 048
  10. PREVACID [Suspect]
     Active Substance: LANSOPRAZOLE
     Indication: GASTROOESOPHAGEAL REFLUX DISEASE
     Dosage: GENERIC
     Route: 065
  11. GABAPENTIN. [Concomitant]
     Active Substance: GABAPENTIN
     Route: 048
  12. TYLENOL [Concomitant]
     Active Substance: ACETAMINOPHEN
     Route: 048
  13. CLONAZEPAM. [Concomitant]
     Active Substance: CLONAZEPAM
     Route: 048
  14. TEMAZEPAM. [Concomitant]
     Active Substance: TEMAZEPAM
     Route: 048
  15. RANITIDINE. [Concomitant]
     Active Substance: RANITIDINE
     Route: 048
  16. CIPROFLOXACIN. [Concomitant]
     Active Substance: CIPROFLOXACIN
     Route: 048
  17. PRILOSEC [Suspect]
     Active Substance: OMEPRAZOLE MAGNESIUM
     Indication: GASTROOESOPHAGEAL REFLUX DISEASE
     Route: 048
     Dates: start: 20110101, end: 20151231
  18. TRAMADOL. [Concomitant]
     Active Substance: TRAMADOL
     Route: 048
  19. ATIVAN [Concomitant]
     Active Substance: LORAZEPAM
     Route: 048
  20. HYDROCODONE BITARTRATE AND ACETAMINOPHEN [Concomitant]
     Active Substance: ACETAMINOPHEN\HYDROCODONE BITARTRATE
     Route: 048
  21. MELOXICAM. [Concomitant]
     Active Substance: MELOXICAM
     Route: 048
  22. ZYRTEC [Concomitant]
     Active Substance: CETIRIZINE HYDROCHLORIDE
     Route: 048
  23. ASPIRIN. [Concomitant]
     Active Substance: ASPIRIN
     Route: 048
  24. BENZONATATE. [Concomitant]
     Active Substance: BENZONATATE
     Route: 048
  25. FENTANYL. [Concomitant]
     Active Substance: FENTANYL
     Route: 048
  26. NEXIUM [Suspect]
     Active Substance: ESOMEPRAZOLE MAGNESIUM
     Indication: GASTROOESOPHAGEAL REFLUX DISEASE
     Route: 048
  27. PREVACID [Suspect]
     Active Substance: LANSOPRAZOLE
     Indication: GASTROOESOPHAGEAL REFLUX DISEASE
     Route: 065
     Dates: start: 2013, end: 2015
  28. TIZANIDINE. [Concomitant]
     Active Substance: TIZANIDINE
     Route: 048
  29. MEPERIDINE [Concomitant]
     Active Substance: MEPERIDINE
     Route: 048
  30. ZOLPIDEM [Concomitant]
     Active Substance: ZOLPIDEM\ZOLPIDEM TARTRATE
     Route: 048

REACTIONS (1)
  - Chronic kidney disease [Not Recovered/Not Resolved]

NARRATIVE: CASE EVENT DATE: 201402
